FAERS Safety Report 9321818 (Version 1)
Quarter: 2013Q2

REPORT INFORMATION
  Report Type: Spontaneous
  Country: US (occurrence: US)
  Receive Date: 20130531
  Receipt Date: 20130531
  Transmission Date: 20140414
  Serious: Yes (Hospitalization, Other)
  Sender: FDA-Public Use
  Company Number: US-009507513-1305USA016621

PATIENT
  Age: 47 Year
  Sex: Female

DRUGS (1)
  1. NUVARING [Suspect]
     Route: 067

REACTIONS (1)
  - Cerebrovascular accident [Unknown]
